FAERS Safety Report 9938773 (Version 1)
Quarter: 2014Q1

REPORT INFORMATION
  Report Type: Spontaneous
  Country: US (occurrence: US)
  Receive Date: 20140303
  Receipt Date: 20140303
  Transmission Date: 20141002
  Serious: No
  Sender: FDA-Public Use
  Company Number: US-PFIZER INC-2014055821

PATIENT
  Sex: Male

DRUGS (2)
  1. CELEBREX [Suspect]
     Dosage: UNK
     Route: 048
  2. CELEBREX [Suspect]
     Dosage: 2 DF, UNK

REACTIONS (3)
  - Intentional drug misuse [Unknown]
  - Dizziness [Unknown]
  - Anxiety [Unknown]
